FAERS Safety Report 11056680 (Version 3)
Quarter: 2015Q2

REPORT INFORMATION
  Report Type: Spontaneous
  Country: None (occurrence: None)
  Receive Date: 20150414
  Receipt Date: 20150513
  Transmission Date: 20150821
  Serious: Yes (Hospitalization, Other)
  Sender: FDA-Public Use
  Company Number: 1713747-2015-999120

PATIENT
  Age: 88 Year
  Sex: Female

DRUGS (6)
  1. LIBERTY CYCLE CASSETTE [Concomitant]
  2. DELFLEX [Suspect]
     Active Substance: CALCIUM CHLORIDE\DEXTROSE MONOHYDRATE\MAGNESIUM CHLORIDE\SODIUM CHLORIDE\SODIUM LACTATE
     Indication: PERITONEAL DIALYSIS
     Route: 033
  3. POTASSIUM [Concomitant]
     Active Substance: POTASSIUM
  4. LIBERTY CYCLER [Concomitant]
     Active Substance: DEVICE
  5. METOPROLOL [Concomitant]
     Active Substance: METOPROLOL
  6. MIRALAX [Concomitant]
     Active Substance: POLYETHYLENE GLYCOL 3350

REACTIONS (1)
  - Peritonitis [None]

NARRATIVE: CASE EVENT DATE: 201503
